FAERS Safety Report 17497181 (Version 5)
Quarter: 2024Q4

REPORT INFORMATION
  Report Type: Spontaneous
  Country: US (occurrence: US)
  Receive Date: 20200304
  Receipt Date: 20241220
  Transmission Date: 20250114
  Serious: No
  Sender: BIOGEN
  Company Number: US-BIOGEN-2020BI00845456

PATIENT
  Sex: Female

DRUGS (3)
  1. TYSABRI [Suspect]
     Active Substance: NATALIZUMAB
     Indication: Multiple sclerosis
     Route: 050
     Dates: start: 20150918
  2. TYSABRI [Suspect]
     Active Substance: NATALIZUMAB
     Route: 050
     Dates: start: 20150918
  3. TYSABRI [Suspect]
     Active Substance: NATALIZUMAB
     Route: 050

REACTIONS (2)
  - Prescribed underdose [Not Recovered/Not Resolved]
  - Urinary tract infection [Recovered/Resolved]
